FAERS Safety Report 16650393 (Version 1)
Quarter: 2019Q3

REPORT INFORMATION
  Report Type: Spontaneous
  Country: US (occurrence: US)
  Receive Date: 20190731
  Receipt Date: 20190731
  Transmission Date: 20191004
  Serious: No
  Sender: FDA-Public Use
  Company Number: US-TEVA-2019-US-1083509

PATIENT
  Sex: Male

DRUGS (1)
  1. BUPROPION EXTENDED RELEASE XL [Suspect]
     Active Substance: BUPROPION
     Dosage: ROUND, WHITE TO OFF-WHITE/WPI/3331
     Route: 065

REACTIONS (1)
  - Insomnia [Unknown]
